FAERS Safety Report 8798523 (Version 2)
Quarter: 2015Q1

REPORT INFORMATION
  Report Type: Report from Study
  Country: US (occurrence: US)
  Receive Date: 20120920
  Receipt Date: 20150305
  Transmission Date: 20150721
  Serious: Yes (Death)
  Sender: FDA-Public Use
  Company Number: US-ROCHE-1102457

PATIENT
  Sex: Female

DRUGS (10)
  1. ABRAXANE [Concomitant]
     Active Substance: PACLITAXEL
     Route: 042
  2. ACETAMINOPHEN. [Concomitant]
     Active Substance: ACETAMINOPHEN
     Route: 048
  3. MANNITOL. [Concomitant]
     Active Substance: MANNITOL
     Route: 042
  4. CISPLATIN. [Concomitant]
     Active Substance: CISPLATIN
     Route: 042
  5. DECADRON [Concomitant]
     Active Substance: DEXAMETHASONE
     Route: 042
  6. ATIVAN [Concomitant]
     Active Substance: LORAZEPAM
     Route: 042
  7. VICODIN [Concomitant]
     Active Substance: ACETAMINOPHEN\HYDROCODONE BITARTRATE
  8. AVASTIN [Suspect]
     Active Substance: BEVACIZUMAB
     Indication: MALIGNANT MELANOMA
     Route: 042
     Dates: start: 20091027
  9. IBUPROFEN. [Concomitant]
     Active Substance: IBUPROFEN
     Route: 048
  10. ALOXI [Concomitant]
     Active Substance: PALONOSETRON HYDROCHLORIDE
     Route: 042

REACTIONS (7)
  - Off label use [Unknown]
  - Death [Fatal]
  - Chest pain [Unknown]
  - Nausea [Recovered/Resolved]
  - Metastases to skin [Unknown]
  - Constipation [Unknown]
  - Dermatitis [Unknown]
